FAERS Safety Report 5160879-5 (Version None)
Quarter: 2006Q4

REPORT INFORMATION
  Report Type: 
  Country: None (occurrence: None)
  Receive Date: 20061121
  Receipt Date: 20061110
  Transmission Date: 20070319
  Serious: Yes (Hospitalization)
  Sender: FDA-Public Use
  Company Number: GXKR2006PL07270

PATIENT
  Age: 26 Year
  Sex: Male

DRUGS (2)
  1. KETONAL [Suspect]
     Indication: GROIN PAIN
     Dosage: 100 MG, INTRAMUSCULAR
     Route: 030
     Dates: start: 20061022, end: 20061023
  2. TRAMADOL HCL [Concomitant]

REACTIONS (8)
  - ARRHYTHMIA [None]
  - BLOOD PRESSURE DECREASED [None]
  - BRADYCARDIA [None]
  - CIRCULATORY COLLAPSE [None]
  - EMOTIONAL DISORDER [None]
  - HYPERHIDROSIS [None]
  - PALLOR [None]
  - SYNCOPE [None]
